FAERS Safety Report 16184897 (Version 1)
Quarter: 2019Q2

REPORT INFORMATION
  Report Type: Spontaneous
  Country: HR (occurrence: HR)
  Receive Date: 20190411
  Receipt Date: 20190411
  Transmission Date: 20190711
  Serious: Yes (Hospitalization)
  Sender: FDA-Public Use
  Company Number: HR-JNJFOC-20190414102

PATIENT
  Age: 84 Year
  Sex: Female
  Weight: 94 kg

DRUGS (9)
  1. TRIAPIN [Concomitant]
     Active Substance: FELODIPINE\RAMIPRIL
     Indication: ESSENTIAL HYPERTENSION
     Dosage: 5MG+5MG; 1X1
     Route: 048
  2. INDAMID [Concomitant]
     Active Substance: INDAPAMIDE
     Indication: ESSENTIAL HYPERTENSION
     Route: 048
     Dates: end: 20190301
  3. XANAX [Concomitant]
     Active Substance: ALPRAZOLAM
     Indication: MIXED ANXIETY AND DEPRESSIVE DISORDER
     Route: 065
  4. ZALDIAR [Concomitant]
     Active Substance: ACETAMINOPHEN\TRAMADOL HYDROCHLORIDE
     Indication: JOINT PROSTHESIS USER
     Dosage: 3 DF, UNK(37,5MG+325MG; 1,1,1)
     Route: 048
  5. TRITACE [Concomitant]
     Active Substance: RAMIPRIL
     Indication: ESSENTIAL HYPERTENSION
     Route: 048
     Dates: start: 2018
  6. ALOPURINOL BELUPO [Concomitant]
     Indication: PURINE METABOLISM DISORDER
     Route: 048
  7. METOPROLOL SUCCINATE. [Concomitant]
     Active Substance: METOPROLOL SUCCINATE
     Indication: ESSENTIAL HYPERTENSION
     Route: 048
  8. XARELTO [Suspect]
     Active Substance: RIVAROXABAN
     Indication: ATRIAL FIBRILLATION
     Route: 048
     Dates: start: 20180608, end: 20190301
  9. KALIJEV KLORID JADRAN [Concomitant]
     Indication: CONGESTIVE CARDIOMYOPATHY
     Route: 048
     Dates: end: 20190301

REACTIONS (6)
  - Gait disturbance [Recovered/Resolved]
  - Malaise [Recovered/Resolved]
  - Anaemia [Recovering/Resolving]
  - Gastrointestinal haemorrhage [Recovering/Resolving]
  - Dizziness [Recovered/Resolved]
  - Balance disorder [Recovered/Resolved]

NARRATIVE: CASE EVENT DATE: 201812
